FAERS Safety Report 8927427 (Version 1)
Quarter: 2012Q4

REPORT INFORMATION
  Report Type: 
  Country: US (occurrence: US)
  Receive Date: 20121127
  Receipt Date: 20121127
  Transmission Date: 20130627
  Serious: Yes (Other)
  Sender: FDA-Public Use
  Company Number: US-WATSON-2012-19926

PATIENT
  Sex: Male

DRUGS (3)
  1. PROPOXYPHENE HYDROCHLORIDE AND ACETAMINOPHEN [Suspect]
     Indication: PAIN MANAGEMENT
     Dosage: UNK
     Route: 065
  2. DARVON [Suspect]
     Indication: PAIN MANAGEMENT
  3. DARVOCET                           /00220901/ [Suspect]
     Indication: PAIN MANAGEMENT

REACTIONS (2)
  - Cardiac disorder [Unknown]
  - Cardiovascular disorder [None]
